FAERS Safety Report 23388304 (Version 1)
Quarter: 2024Q1

REPORT INFORMATION
  Report Type: Spontaneous
  Country: US (occurrence: US)
  Receive Date: 20240110
  Receipt Date: 20240110
  Transmission Date: 20240409
  Serious: Yes (Hospitalization)
  Sender: FDA-Public Use
  Company Number: US-BIOVITRUM-2024-US-000545

PATIENT
  Age: 3 Year
  Sex: Male

DRUGS (16)
  1. EMAPALUMAB [Suspect]
     Active Substance: EMAPALUMAB
     Indication: Product used for unknown indication
     Dates: start: 20231116
  2. KINERET [Suspect]
     Active Substance: ANAKINRA
     Indication: Autoinflammatory disease
     Dates: start: 20230216
  3. KINERET [Suspect]
     Active Substance: ANAKINRA
     Dosage: QD
  4. KINERET [Suspect]
     Active Substance: ANAKINRA
     Dosage: Q 6 HOUR
     Dates: start: 202310, end: 20231021
  5. KINERET [Suspect]
     Active Substance: ANAKINRA
     Dates: start: 20230623
  6. JAKAFI [Suspect]
     Active Substance: RUXOLITINIB
     Indication: Autoinflammatory disease
  7. TOFACITINIB [Suspect]
     Active Substance: TOFACITINIB
     Indication: Autoinflammatory disease
     Dates: start: 20230623, end: 20231025
  8. METHYLPREDNISOLONE [Concomitant]
     Active Substance: METHYLPREDNISOLONE
     Indication: Product used for unknown indication
     Route: 042
     Dates: start: 20231020
  9. CANAKINUMAB [Concomitant]
     Active Substance: CANAKINUMAB
     Indication: Product used for unknown indication
     Dates: start: 20230517
  10. IMMUNOGLOBULINS [Concomitant]
     Indication: Product used for unknown indication
  11. BARICITINIB [Concomitant]
     Active Substance: BARICITINIB
     Indication: Product used for unknown indication
     Dates: start: 20231025
  12. CYCLOSPORINE [Concomitant]
     Active Substance: CYCLOSPORINE
     Indication: Product used for unknown indication
     Dates: start: 20231029
  13. AZITHROMYCIN [Concomitant]
     Active Substance: AZITHROMYCIN
     Indication: Product used for unknown indication
  14. EPINEPHRINE [Concomitant]
     Active Substance: EPINEPHRINE
     Indication: Product used for unknown indication
     Dates: start: 20231123, end: 20231125
  15. HYDROCORTISONE ACETATE [Concomitant]
     Active Substance: HYDROCORTISONE ACETATE
     Indication: Product used for unknown indication
     Dates: start: 20231124
  16. PENTAMIDINE [Concomitant]
     Active Substance: PENTAMIDINE
     Indication: Product used for unknown indication

REACTIONS (5)
  - Autoinflammatory disease [Unknown]
  - Condition aggravated [Unknown]
  - Influenza [Unknown]
  - Otitis media [Unknown]
  - Off label use [Unknown]
